FAERS Safety Report 10559997 (Version 1)
Quarter: 2014Q4

REPORT INFORMATION
  Report Type: Spontaneous
  Country: US (occurrence: None)
  Receive Date: 20141031
  Receipt Date: 20141031
  Transmission Date: 20150529
  Serious: Yes (Hospitalization)
  Sender: FDA-Public Use
  Company Number: None

PATIENT
  Age: 62 Year
  Sex: Male
  Weight: 117.7 kg

DRUGS (1)
  1. PASIREOTIDE [Suspect]
     Active Substance: PASIREOTIDE
     Indication: THYROID CANCER
     Route: 030
     Dates: start: 20141020

REACTIONS (6)
  - Atrial fibrillation [None]
  - Blood culture positive [None]
  - Infection [None]
  - Chills [None]
  - Chest discomfort [None]
  - Tremor [None]

NARRATIVE: CASE EVENT DATE: 20141028
